FAERS Safety Report 13995447 (Version 2)
Quarter: 2017Q4

REPORT INFORMATION
  Report Type: Spontaneous
  Country: US (occurrence: US)
  Receive Date: 20170921
  Receipt Date: 20171026
  Transmission Date: 20180321
  Serious: Yes (Death, Hospitalization, Other)
  Sender: FDA-Public Use
  Company Number: US-009507513-1709USA009826

PATIENT

DRUGS (1)
  1. KEYTRUDA [Suspect]
     Active Substance: PEMBROLIZUMAB
     Indication: METASTASES TO LUNG
     Dosage: 200 MG, FREQUENCY REPORTED AS 1 DOSE
     Route: 042
     Dates: start: 20170824, end: 20170914

REACTIONS (4)
  - Disseminated intravascular coagulation [Unknown]
  - Immune thrombocytopenic purpura [Not Recovered/Not Resolved]
  - Malignant neoplasm progression [Fatal]
  - Lung disorder [Fatal]

NARRATIVE: CASE EVENT DATE: 2017
